FAERS Safety Report 5129617-6 (Version None)
Quarter: 2006Q4

REPORT INFORMATION
  Report Type: 
  Country: None (occurrence: None)
  Receive Date: 20061012
  Receipt Date: 20061002
  Transmission Date: 20070319
  Serious: Yes (Death)
  Sender: FDA-Public Use
  Company Number: 2006000554

PATIENT
  Age: 44 Year
  Sex: 0

DRUGS (3)
  1. DURACLON [Suspect]
     Dosage: ORAL
     Route: 048
  2. CLONAZEPAM [Suspect]
     Dosage: ORAL
     Route: 048
  3. ATENOLOL [Suspect]
     Dosage: ORAL
     Route: 048

REACTIONS (2)
  - COMPLETED SUICIDE [None]
  - INCORRECT DOSE ADMINISTERED [None]
